FAERS Safety Report 7118427-6 (Version None)
Quarter: 2010Q4

REPORT INFORMATION
  Report Type: 
  Country: None (occurrence: None)
  Receive Date: 20101123
  Receipt Date: 20101116
  Transmission Date: 20110411
  Serious: Yes (Hospitalization)
  Sender: FDA-Public Use
  Company Number: FR-B.I. PHARMACEUTICALS,INC./RIDGEFIELD-2010-FF-00738FF

PATIENT
  Sex: Female
  Weight: 63.2 kg

DRUGS (5)
  1. MICARDIS HCT [Suspect]
     Indication: HYPERTENSION
     Dosage: 80MG / 25MG DAILY
     Route: 048
     Dates: start: 20100311, end: 20100515
  2. CRESTOR [Suspect]
     Route: 048
  3. GLUCOPHAGE [Concomitant]
  4. DIAMICRON [Concomitant]
  5. LEVOTHYROXINE SODIUM [Concomitant]

REACTIONS (2)
  - PANCREATITIS ACUTE [None]
  - SHOCK [None]
